FAERS Safety Report 5959699-0 (Version None)
Quarter: 2008Q4

REPORT INFORMATION
  Report Type: 
  Country: None (occurrence: None)
  Receive Date: 20081119
  Receipt Date: 20081119
  Transmission Date: 20090506
  Serious: Yes (Life-Threatening)
  Sender: FDA-Public Use
  Company Number: None

PATIENT
  Age: 52 Year
  Sex: Male
  Weight: 70 kg

DRUGS (16)
  1. DAPSONE [Suspect]
     Indication: PNEUMOCYSTIS JIROVECI PNEUMONIA
     Dosage: 100 MG PO QD
     Route: 048
     Dates: end: 20080530
  2. DAPSONE [Suspect]
     Indication: PROPHYLAXIS
     Dosage: 100 MG PO QD
     Route: 048
     Dates: end: 20080530
  3. ENOXAPARIN SODIUM [Concomitant]
  4. DOCUSATE [Concomitant]
  5. LEVOTHYROXINE SODIUM [Concomitant]
  6. LANSOPRAZOLE [Concomitant]
  7. ACYCLOVIR [Concomitant]
  8. HYDROCORTISONE [Concomitant]
  9. HYDROMORPHONE HCL [Concomitant]
  10. AMBIEN [Concomitant]
  11. DESMOPRESSIN ACETATE [Concomitant]
  12. VANCOMYCIN [Concomitant]
  13. CEFEPIME [Concomitant]
  14. ESCITALOPRAM [Concomitant]
  15. FUROSEMIDE [Concomitant]
  16. FENTANYL-100 [Concomitant]

REACTIONS (1)
  - METHAEMOGLOBINAEMIA [None]
